FAERS Safety Report 4910787-7 (Version None)
Quarter: 2006Q1

REPORT INFORMATION
  Report Type: 
  Country: None (occurrence: None)
  Receive Date: 20060214
  Receipt Date: 20000817
  Transmission Date: 20060701
  Serious: Yes (Hospitalization, Other)
  Sender: FDA-Public Use
  Company Number: NZ-AVENTIS-200020605GDDC

PATIENT
  Sex: Female

DRUGS (5)
  1. DOCETAXEL [Suspect]
     Indication: BREAST CANCER
     Route: 042
     Dates: start: 20000801, end: 20000816
  2. DOXORUBICIN HCL [Suspect]
     Indication: BREAST CANCER
     Route: 042
     Dates: start: 20000801, end: 20000816
  3. DEXAMETHASONE [Concomitant]
     Route: 042
     Dates: start: 20000731
  4. CIPROFLOXACIN [Concomitant]
     Dates: start: 20000801, end: 20000812
  5. ONDANSETRON [Concomitant]
     Route: 042
     Dates: start: 20000731, end: 20000731

REACTIONS (4)
  - COUGH [None]
  - FEBRILE NEUTROPENIA [None]
  - HEADACHE [None]
  - NASAL CONGESTION [None]
